FAERS Safety Report 5141121-8 (Version None)
Quarter: 2006Q4

REPORT INFORMATION
  Report Type: 
  Country: None (occurrence: None)
  Receive Date: 20061026
  Receipt Date: 20061011
  Transmission Date: 20070319
  Serious: Yes (Other)
  Sender: FDA-Public Use
  Company Number: 2006RR-04114

PATIENT
  Age: 72 Year
  Sex: Female

DRUGS (3)
  1. CLARITYHROMYCIN (CLARITHROMYCIN) [Suspect]
     Dosage: 250 MG, BID
     Dates: start: 20060830
  2. PREDNISOLONE [Suspect]
     Dosage: 30 MG
     Dates: start: 20060830
  3. PORPAFENONE [Concomitant]

REACTIONS (1)
  - ARRHYTHMIA [None]
